FAERS Safety Report 4901980-8 (Version None)
Quarter: 2006Q1

REPORT INFORMATION
  Report Type: 
  Country: None (occurrence: None)
  Receive Date: 20060202
  Receipt Date: 20060202
  Transmission Date: 20060701
  Serious: Yes (Other)
  Sender: FDA-Public Use
  Company Number: None

PATIENT
  Age: 59 Year

DRUGS (3)
  1. FENTANYL [Suspect]
     Indication: BACK PAIN
     Dosage: 100 MCG Q 72
     Dates: start: 20060118
  2. ZANAFLEX [Concomitant]
  3. BACLOFEN [Concomitant]

REACTIONS (3)
  - DRUG INEFFECTIVE [None]
  - SKIN IRRITATION [None]
  - THERAPEUTIC RESPONSE UNEXPECTED WITH DRUG SUBSTITUTION [None]
